FAERS Safety Report 8513955-0 (Version None)
Quarter: 2012Q3

REPORT INFORMATION
  Report Type: 
  Country: None (occurrence: None)
  Receive Date: 20120717
  Receipt Date: 20120221
  Transmission Date: 20120928
  Serious: Yes (Death, Other)
  Sender: FDA-Public Use
  Company Number: JP-009507513-2011SP049534

PATIENT
  Sex: Female
  Weight: 61 kg

DRUGS (16)
  1. INTERFERON ALPHA [Suspect]
     Dosage: 6 MILLION IU, QD
     Route: 041
     Dates: start: 20101103, end: 20101109
  2. INTERFERON BETA NOS [Suspect]
     Indication: HEPATITIS C
     Route: 041
     Dates: start: 20101020, end: 20101102
  3. INTERFERON BETA NOS [Suspect]
     Route: 041
     Dates: start: 20101110, end: 20101115
  4. INTERFERON ALPHA [Suspect]
     Dosage: 3 MILLION IU, QD
     Route: 041
     Dates: start: 20101110, end: 20101115
  5. INTERFERON ALPHA [Suspect]
     Dosage: 6 MILLION IU, QD
     Route: 041
     Dates: start: 20110317, end: 20110322
  6. LOXOPROFEN SODIUM [Concomitant]
     Indication: PROPHYLAXIS
     Dosage: 60~180 MG
     Route: 048
     Dates: start: 20101020, end: 20110322
  7. INTERFERON BETA NOS [Suspect]
     Route: 041
     Dates: start: 20110302, end: 20110316
  8. INTERFERON ALPHA [Suspect]
     Dosage: 6 MILLION IU, TIW
     Route: 041
     Dates: start: 20101117, end: 20110225
  9. SELBEX [Concomitant]
     Indication: GASTRITIS PROPHYLAXIS
     Dosage: 50-150MG/DAY AS NEEDED
     Route: 048
     Dates: start: 20101020, end: 20110322
  10. INTERFERON BETA NOS [Suspect]
     Route: 041
     Dates: start: 20110317, end: 20110322
  11. REBETOL [Suspect]
     Dosage: 400 MG, BID
     Route: 048
     Dates: start: 20101020, end: 20110322
  12. INTERFERON ALPHA [Suspect]
     Dosage: 3 MILLION IU, BID
     Route: 041
     Dates: start: 20101020, end: 20101102
  13. INTERFERON ALPHA [Suspect]
     Dosage: 3 MILLION IU, BID
     Route: 041
     Dates: start: 20110302, end: 20110316
  14. INTERFERON BETA NOS [Suspect]
     Route: 041
     Dates: start: 20101103, end: 20101109
  15. INTERFERON BETA NOS [Suspect]
     Route: 041
     Dates: start: 20101117, end: 20110225
  16. LOXOPROFEN [Concomitant]
     Indication: PROPHYLAXIS
     Dosage: 60-180MG/DAY AS NEEDED
     Route: 048
     Dates: start: 20101020, end: 20110322

REACTIONS (1)
  - NEUTROPHIL COUNT DECREASED [None]
